FAERS Safety Report 22969176 (Version 2)
Quarter: 2023Q4

REPORT INFORMATION
  Report Type: Spontaneous
  Country: JP (occurrence: JP)
  Receive Date: 20230922
  Receipt Date: 20231221
  Transmission Date: 20240110
  Serious: Yes (Death, Hospitalization, Other)
  Sender: FDA-Public Use
  Company Number: JP-Merck Healthcare KGaA-2023470349

PATIENT
  Age: 63 Year
  Sex: Male
  Weight: 75 kg

DRUGS (9)
  1. METGLUCO [Suspect]
     Active Substance: METFORMIN HYDROCHLORIDE
     Indication: Type 2 diabetes mellitus
     Route: 048
  2. AMLODIPINE BESYLATE [Suspect]
     Active Substance: AMLODIPINE BESYLATE
     Indication: Hypertension
  3. IPRAGLIFLOZIN L-PROLINE [Concomitant]
     Active Substance: IPRAGLIFLOZIN L-PROLINE
     Indication: Product used for unknown indication
     Dosage: ONGOING
  4. LINAGLIPTIN [Concomitant]
     Active Substance: LINAGLIPTIN
     Indication: Product used for unknown indication
     Dosage: ONGOING
  5. AMARYL [Concomitant]
     Active Substance: GLIMEPIRIDE
     Indication: Product used for unknown indication
     Dosage: ONGOING
  6. HYDROCHLOROTHIAZIDE\TELMISARTAN [Concomitant]
     Active Substance: HYDROCHLOROTHIAZIDE\TELMISARTAN
     Indication: Product used for unknown indication
     Dosage: ONGOING
  7. LIVALO [Concomitant]
     Active Substance: PITAVASTATIN CALCIUM
     Indication: Product used for unknown indication
     Dosage: ONGOING
  8. OMEGA-3-ACID ETHYL ESTERS [Concomitant]
     Active Substance: OMEGA-3-ACID ETHYL ESTERS
     Indication: Product used for unknown indication
     Dosage: ONGOING
  9. FEBUXOSTAT [Concomitant]
     Active Substance: FEBUXOSTAT
     Indication: Product used for unknown indication
     Dosage: ONGOING

REACTIONS (27)
  - Lactic acidosis [Fatal]
  - Cardiac arrest [Fatal]
  - Acute kidney injury [Fatal]
  - Diabetic nephropathy [Fatal]
  - Rhabdomyolysis [Fatal]
  - Cystitis [Unknown]
  - Bronchitis [Unknown]
  - Intervertebral discitis [Unknown]
  - Sepsis [Unknown]
  - Infective spondylitis [Unknown]
  - Intestinal ischaemia [Unknown]
  - Ischaemic enteritis [Unknown]
  - Dehydration [Unknown]
  - Pneumonia [Unknown]
  - Staphylococcal infection [Unknown]
  - Generalised oedema [Unknown]
  - Cyanosis [Unknown]
  - Dysarthria [Unknown]
  - Disseminated intravascular coagulation [Unknown]
  - Cardiovascular insufficiency [Unknown]
  - Small intestinal haemorrhage [Unknown]
  - Gastric haemorrhage [Unknown]
  - Diabetic retinopathy [Unknown]
  - Aspartate aminotransferase increased [Unknown]
  - Contraindicated product administered [Unknown]
  - Coronavirus infection [Unknown]
  - Incontinence [Unknown]

NARRATIVE: CASE EVENT DATE: 20220801
